FAERS Safety Report 17883765 (Version 2)
Quarter: 2021Q2

REPORT INFORMATION
  Report Type: Report from Study
  Country: JP (occurrence: JP)
  Receive Date: 20200611
  Receipt Date: 20210628
  Transmission Date: 20210717
  Serious: Yes (Other)
  Sender: FDA-Public Use
  Company Number: JP-TEVA-2020-JP-1435888

PATIENT
  Age: 78 Year
  Sex: Female

DRUGS (7)
  1. ROPINIROLE. [Concomitant]
     Active Substance: ROPINIROLE
  2. MAGNESIUM OXIDE. [Concomitant]
     Active Substance: MAGNESIUM OXIDE
  3. LEVODOPA [Concomitant]
     Active Substance: LEVODOPA
  4. NOURIAST [Concomitant]
     Active Substance: ISTRADEFYLLINE
  5. RASAGILINE MESILATE [Suspect]
     Active Substance: RASAGILINE MESYLATE
     Indication: PARKINSON^S DISEASE
     Dosage: .5 MILLIGRAM DAILY;
     Route: 065
     Dates: start: 20190613
  6. AMITIZA [Concomitant]
     Active Substance: LUBIPROSTONE
  7. TRERIEF [Concomitant]
     Active Substance: ZONISAMIDE

REACTIONS (1)
  - Hallucination, visual [Recovering/Resolving]

NARRATIVE: CASE EVENT DATE: 201908
